FAERS Safety Report 25312461 (Version 3)
Quarter: 2025Q3

REPORT INFORMATION
  Report Type: Report from Study
  Country: US (occurrence: US)
  Receive Date: 20250514
  Receipt Date: 20250803
  Transmission Date: 20251021
  Serious: Yes (Other)
  Sender: ALEXION PHARMACEUTICALS
  Company Number: US-AstraZeneca-CH-00867986A

PATIENT
  Sex: Male

DRUGS (1)
  1. ULTOMIRIS [Suspect]
     Active Substance: RAVULIZUMAB-CWVZ
     Indication: Neuromyelitis optica spectrum disorder
     Route: 065

REACTIONS (6)
  - Neuromyelitis optica spectrum disorder [Unknown]
  - Pneumonia [Unknown]
  - Renal cyst [Unknown]
  - Sinusitis [Unknown]
  - Fatigue [Unknown]
  - Heart rate irregular [Unknown]
